FAERS Safety Report 7289188-5 (Version None)
Quarter: 2011Q1

REPORT INFORMATION
  Report Type: 
  Country: None (occurrence: None)
  Receive Date: 20110211
  Receipt Date: 20110205
  Transmission Date: 20110831
  Serious: Yes (Hospitalization)
  Sender: FDA-Public Use
  Company Number: DE-ASTRAZENECA-2011SE06731

PATIENT
  Age: 61 Year
  Sex: Female

DRUGS (2)
  1. CLARITHROMYCIN [Interacting]
     Route: 065
  2. BRILIQUE [Suspect]
     Route: 048
     Dates: start: 20110203

REACTIONS (4)
  - DISORIENTATION [None]
  - APATHY [None]
  - TRANSAMINASES INCREASED [None]
  - DRUG INTERACTION [None]
